FAERS Safety Report 26135645 (Version 1)
Quarter: 2025Q4

REPORT INFORMATION
  Report Type: Spontaneous
  Country: TR (occurrence: TR)
  Receive Date: 20251209
  Receipt Date: 20251209
  Transmission Date: 20260118
  Serious: Yes (Other)
  Sender: B. BRAUN MEDICAL INC.
  Company Number: TR-B. Braun Medical Inc.-TR-BBM-202504682

PATIENT
  Age: 71 Year
  Sex: Male

DRUGS (1)
  1. CEFUROXIME [Suspect]
     Active Substance: CEFUROXIME
     Indication: Cataract operation
     Dosage: INTRACAMERAL INJECTION

REACTIONS (2)
  - Haemorrhagic occlusive retinal vasculitis [Recovered/Resolved]
  - Off label use [Unknown]
